FAERS Safety Report 4653332-6 (Version None)
Quarter: 2005Q2

REPORT INFORMATION
  Report Type: 
  Country: None (occurrence: None)
  Receive Date: 20050503
  Receipt Date: 20050503
  Transmission Date: 20051028
  Serious: Yes (Other)
  Sender: FDA-Public Use
  Company Number: None

PATIENT
  Age: 50 Year
  Sex: Female
  Weight: 56.6996 kg

DRUGS (1)
  1. FOSAMAX [Suspect]
     Indication: OSTEOPENIA
     Dosage: 1 TABLET 1 X P/WK
     Dates: start: 20041001, end: 20050201

REACTIONS (3)
  - ARTHRALGIA [None]
  - GRIP STRENGTH DECREASED [None]
  - SHOULDER PAIN [None]
